FAERS Safety Report 7025427-3 (Version None)
Quarter: 2010Q4

REPORT INFORMATION
  Report Type: 
  Country: None (occurrence: None)
  Receive Date: 20101001
  Receipt Date: 20100927
  Transmission Date: 20110411
  Serious: Yes (Death)
  Sender: FDA-Public Use
  Company Number: PHHY2010DE51435

PATIENT
  Age: 64 Year
  Sex: Female

DRUGS (2)
  1. TRILEPTAL [Suspect]
     Indication: EPILEPSY
     Dosage: 900 MG, QD
     Route: 048
  2. TRILEPTAL [Suspect]
     Indication: CONVULSION

REACTIONS (1)
  - DEMENTIA ALZHEIMER'S TYPE [None]
